FAERS Safety Report 6921559-6 (Version None)
Quarter: 2010Q3

REPORT INFORMATION
  Report Type: 
  Country: None (occurrence: None)
  Receive Date: 20100812
  Receipt Date: 20100804
  Transmission Date: 20110219
  Serious: Yes (Other)
  Sender: FDA-Public Use
  Company Number: JP-JNJCH-2010018365

PATIENT
  Age: 6 Year
  Sex: Male

DRUGS (7)
  1. ZYRTEC [Suspect]
     Indication: URTICARIA
     Dosage: TEXT:0.8 MG QD, DRY SYRUP 1.25%
     Route: 048
     Dates: start: 20100803, end: 20100804
  2. CEFZON [Concomitant]
     Indication: IMPETIGO
     Dosage: TEXT:UNKNOWN
     Route: 065
  3. MEIACT [Concomitant]
     Indication: PRODUCT USED FOR UNKNOWN INDICATION
     Dosage: TEXT:UNKNOWN
     Route: 048
  4. ACUATIM [Concomitant]
     Indication: PRODUCT USED FOR UNKNOWN INDICATION
     Dosage: TEXT:UNKNOWN
     Route: 061
  5. RESTAMIN CORTIZON [Concomitant]
     Indication: PRODUCT USED FOR UNKNOWN INDICATION
     Dosage: TEXT:UNKNOWN
     Route: 061
  6. CLEMASTINE FUMARATE [Concomitant]
     Indication: PRODUCT USED FOR UNKNOWN INDICATION
     Dosage: TEXT:UNKNOWN
     Route: 048
  7. MUCODYNE [Concomitant]
     Indication: PRODUCT USED FOR UNKNOWN INDICATION
     Dosage: TEXT:UNKNOWN
     Route: 048

REACTIONS (2)
  - HYPOAESTHESIA [None]
  - PAIN IN EXTREMITY [None]
